FAERS Safety Report 4863765-0 (Version None)
Quarter: 2005Q4

REPORT INFORMATION
  Report Type: 
  Country: None (occurrence: None)
  Receive Date: 20051222
  Receipt Date: 20050810
  Transmission Date: 20060501
  Serious: No
  Sender: FDA-Public Use
  Company Number: US-GLAXOSMITHKLINE-A0569697A

PATIENT
  Age: 72 Year
  Sex: Female

DRUGS (17)
  1. FLONASE [Suspect]
     Dosage: 4SPR PER DAY
     Route: 045
  2. LIPITOR [Suspect]
     Indication: BLOOD CHOLESTEROL INCREASED
     Dosage: 10MG PER DAY
     Route: 048
  3. ASMACORT [Concomitant]
  4. ALBUTEROL [Concomitant]
  5. ZESTRIL [Concomitant]
  6. MAGNESIUM [Concomitant]
  7. ZETIA [Concomitant]
  8. RED YEAST RICE [Concomitant]
  9. VIT C [Concomitant]
  10. VIT E [Concomitant]
  11. OCUVITE [Concomitant]
  12. CALCIUM GLUCONATE [Concomitant]
  13. VALTREX [Concomitant]
  14. UNKNOWN MEDICATION [Concomitant]
  15. NEXIUM [Concomitant]
  16. LEVBID [Concomitant]
  17. SALINE NASAL SPRAY [Concomitant]

REACTIONS (4)
  - DYSPNOEA [None]
  - LYMPHADENOPATHY [None]
  - PAIN IN EXTREMITY [None]
  - SINUSITIS [None]
